FAERS Safety Report 6567096-2 (Version None)
Quarter: 2010Q1

REPORT INFORMATION
  Report Type: 
  Country: None (occurrence: None)
  Receive Date: 20100127
  Receipt Date: 20100112
  Transmission Date: 20100710
  Serious: Yes (Other)
  Sender: FDA-Public Use
  Company Number: DSJ-2010-00401

PATIENT
  Age: 51 Year
  Sex: Male

DRUGS (5)
  1. BENICAR HCT [Suspect]
     Indication: HYPERTENSION
     Dosage: 40/12.5MG (1 IN 1 D), PER ORAL
     Route: 048
     Dates: start: 20070101, end: 20091101
  2. SIBUTRAMINE (SIBUTRAMINE) (SIBUTRAMINE) [Concomitant]
  3. LANZOPRAZOLE (LANSOPRAZOLE) (LANSOPRAZOLE) [Concomitant]
  4. BROMOPRIDE (BROMOPRIDE) (BROMOPRIDE) [Concomitant]
  5. LEVOTHYROXINE SODIUM (LEVOTHYROXINE SODIUM) (LEVOTHYROXINE SODIUM) [Concomitant]

REACTIONS (3)
  - ANGINA PECTORIS [None]
  - BLOOD PRESSURE INCREASED [None]
  - DRUG INEFFECTIVE [None]
